FAERS Safety Report 21989296 (Version 1)
Quarter: 2023Q1

REPORT INFORMATION
  Report Type: Spontaneous
  Country: US (occurrence: None)
  Receive Date: 20230210
  Receipt Date: 20230210
  Transmission Date: 20230418
  Serious: No
  Sender: FDA-Public Use
  Company Number: None

PATIENT
  Age: 58 Year
  Sex: Female
  Weight: 72.57 kg

DRUGS (2)
  1. LENVIMA [Suspect]
     Active Substance: LENVATINIB
     Indication: Hepatic cancer
     Dosage: FREQUENCY : DAILY;?
     Route: 048
     Dates: start: 20230123
  2. LENVIMA [Suspect]
     Active Substance: LENVATINIB
     Indication: Bile duct cancer

REACTIONS (6)
  - Blood pressure increased [None]
  - Nausea [None]
  - Fatigue [None]
  - Dry mouth [None]
  - Dysphonia [None]
  - Dysphonia [None]
